FAERS Safety Report 16171505 (Version 1)
Quarter: 2019Q2

REPORT INFORMATION
  Report Type: Report from Study
  Country: GT (occurrence: GT)
  Receive Date: 20190408
  Receipt Date: 20190408
  Transmission Date: 20190711
  Serious: Yes (Life-Threatening, Hospitalization)
  Sender: FDA-Public Use
  Company Number: PHHY2018GT056596

PATIENT
  Age: 35 Year
  Sex: Female

DRUGS (1)
  1. GILENYA [Suspect]
     Active Substance: FINGOLIMOD HYDROCHLORIDE
     Indication: PRODUCT USED FOR UNKNOWN INDICATION
     Route: 065

REACTIONS (12)
  - Pyrexia [Unknown]
  - Pain in extremity [Unknown]
  - Pneumonia [Unknown]
  - Asthenia [Unknown]
  - Muscular weakness [Unknown]
  - Diarrhoea [Unknown]
  - Headache [Unknown]
  - Malaise [Unknown]
  - Pain [Unknown]
  - Feeling abnormal [Unknown]
  - Fatigue [Unknown]
  - Ill-defined disorder [Unknown]
